FAERS Safety Report 11926845 (Version 1)
Quarter: 2016Q1

REPORT INFORMATION
  Report Type: Spontaneous
  Country: US (occurrence: None)
  Receive Date: 20160115
  Receipt Date: 20160115
  Transmission Date: 20160526
  Serious: Yes (Other)
  Sender: FDA-Public Use
  Company Number: None

PATIENT
  Age: 56 Year
  Sex: Female
  Weight: 56.7 kg

DRUGS (11)
  1. FLUORESCEIN 1 DROP [Suspect]
     Active Substance: FLUORESCEIN
     Indication: OPHTHALMOLOGICAL EXAMINATION
     Dosage: INTO THE EYE
     Dates: start: 20160113, end: 20160113
  2. TUMERIC [Concomitant]
     Active Substance: TURMERIC
  3. GABAPENTIN. [Concomitant]
     Active Substance: GABAPENTIN
  4. VALIUM [Concomitant]
     Active Substance: DIAZEPAM
  5. METFORMIN [Concomitant]
     Active Substance: METFORMIN HYDROCHLORIDE
  6. VITAMIN D3 [Concomitant]
     Active Substance: CHOLECALCIFEROL
  7. TYLENOL [Concomitant]
     Active Substance: ACETAMINOPHEN
  8. SYNTHROID [Concomitant]
     Active Substance: LEVOTHYROXINE SODIUM
  9. ZANTAC [Concomitant]
     Active Substance: RANITIDINE HYDROCHLORIDE
  10. FLONAISE [Concomitant]
  11. BIOTIN [Concomitant]
     Active Substance: BIOTIN

REACTIONS (12)
  - Heart rate increased [None]
  - Dysstasia [None]
  - Vision blurred [None]
  - Balance disorder [None]
  - Nausea [None]
  - Flushing [None]
  - Documented hypersensitivity to administered product [None]
  - Dizziness [None]
  - Headache [None]
  - Blood pressure increased [None]
  - Eye pruritus [None]
  - Intraocular pressure increased [None]

NARRATIVE: CASE EVENT DATE: 20160113
